FAERS Safety Report 21104995 (Version 1)
Quarter: 2022Q3

REPORT INFORMATION
  Report Type: Spontaneous
  Country: FR (occurrence: FR)
  Receive Date: 20220720
  Receipt Date: 20220720
  Transmission Date: 20221026
  Serious: Yes (Hospitalization)
  Sender: FDA-Public Use
  Company Number: None

PATIENT
  Age: 88 Year
  Sex: Male
  Weight: 60 kg

DRUGS (11)
  1. FUROSEMIDE [Suspect]
     Active Substance: FUROSEMIDE
     Indication: Hypertension
  2. LERCANIDIPINE HYDROCHLORIDE [Suspect]
     Active Substance: LERCANIDIPINE HYDROCHLORIDE
     Indication: Hypertension
     Dates: end: 20220509
  3. NEFOPAM HYDROCHLORIDE [Suspect]
     Active Substance: NEFOPAM HYDROCHLORIDE
     Indication: Pain
     Dosage: AS REQUIRED
     Dates: end: 20220501
  4. PAROXETINE HYDROCHLORIDE [Suspect]
     Active Substance: PAROXETINE HYDROCHLORIDE
     Indication: Mental disorder
  5. ALPRAZOLAM [Suspect]
     Active Substance: ALPRAZOLAM
     Indication: Anxiety
     Dates: end: 20220504
  6. DEXPANTHENOL [Concomitant]
     Active Substance: DEXPANTHENOL
     Dosage: STRENGTH: 5 %
  7. Transipeg [Concomitant]
     Dosage: STRENGTH: 5.9 GRAM, POWDER FOR ORAL SOLUTION IN SACHET
  8. KARDEGIC [Concomitant]
     Active Substance: ASPIRIN DL-LYSINE
  9. AVODART [Concomitant]
     Active Substance: DUTASTERIDE
     Dosage: STRENGTH; 0.5 MG
  10. ACETAMINOPHEN [Concomitant]
     Active Substance: ACETAMINOPHEN
  11. ELIQUIS [Concomitant]
     Active Substance: APIXABAN
     Dosage: STRENGTH: 2.5 MG

REACTIONS (1)
  - Fall [Unknown]

NARRATIVE: CASE EVENT DATE: 20220501
